FAERS Safety Report 8493030-4 (Version None)
Quarter: 2012Q2

REPORT INFORMATION
  Report Type: 
  Country: None (occurrence: None)
  Receive Date: 20120629
  Receipt Date: 20120629
  Transmission Date: 20120825
  Serious: Yes (Hospitalization)
  Sender: FDA-Public Use
  Company Number: None

PATIENT
  Age: 65 Year
  Sex: Male
  Weight: 112 kg

DRUGS (2)
  1. DOXEPIN [Suspect]
     Indication: DEPRESSION
     Dosage: 150 MG AT BEDTIME PO
     Route: 048
     Dates: start: 20120223, end: 20120321
  2. VENLAFAXINE [Suspect]
     Indication: DEPRESSION
     Dosage: 300MG MG AM PO
     Route: 048
     Dates: start: 20120223, end: 20120321

REACTIONS (4)
  - MUSCULAR WEAKNESS [None]
  - ASTHENIA [None]
  - FALL [None]
  - BALANCE DISORDER [None]
